FAERS Safety Report 15081198 (Version 2)
Quarter: 2018Q3

REPORT INFORMATION
  Report Type: Spontaneous
  Country: US (occurrence: US)
  Receive Date: 20180628
  Receipt Date: 20180817
  Transmission Date: 20181010
  Serious: Yes (Death, Hospitalization, Other)
  Sender: FDA-Public Use
  Company Number: US-ASTRAZENECA-2018SE80911

PATIENT
  Age: 25546 Day
  Sex: Male
  Weight: 110.2 kg

DRUGS (28)
  1. LANOXIN [Concomitant]
     Active Substance: DIGOXIN
  2. VICTOZA [Suspect]
     Active Substance: LIRAGLUTIDE
     Indication: TYPE 2 DIABETES MELLITUS
     Route: 058
     Dates: start: 20120315
  3. FISH OIL [Concomitant]
     Active Substance: FISH OIL
     Indication: HYPERLIPIDAEMIA
  4. TURMERIC [Concomitant]
     Active Substance: HERBALS\TURMERIC
     Dates: start: 2015
  5. BYETTA [Suspect]
     Active Substance: EXENATIDE
     Indication: TYPE 2 DIABETES MELLITUS
     Route: 058
     Dates: start: 200801, end: 201202
  6. BYETTA [Suspect]
     Active Substance: EXENATIDE
     Indication: TYPE 2 DIABETES MELLITUS
     Route: 058
     Dates: start: 20080220
  7. VICTOZA [Suspect]
     Active Substance: LIRAGLUTIDE
     Indication: TYPE 2 DIABETES MELLITUS
     Route: 058
     Dates: start: 201202, end: 201310
  8. CALCIUM [Concomitant]
     Active Substance: CALCIUM
     Indication: CALCIUM DEFICIENCY
     Dates: start: 2008
  9. PERCOCET [Concomitant]
     Active Substance: ACETAMINOPHEN\OXYCODONE HYDROCHLORIDE
  10. NOVOLOG [Concomitant]
     Active Substance: INSULIN ASPART
  11. FOLIC ACID. [Concomitant]
     Active Substance: FOLIC ACID
  12. FUROSEMIDE. [Concomitant]
     Active Substance: FUROSEMIDE
  13. METOPROLOL. [Concomitant]
     Active Substance: METOPROLOL
  14. ZOFRAN [Concomitant]
     Active Substance: ONDANSETRON HYDROCHLORIDE
  15. DILAUDID [Concomitant]
     Active Substance: HYDROMORPHONE HYDROCHLORIDE
  16. LOPRESSOR [Concomitant]
     Active Substance: METOPROLOL TARTRATE
  17. WARFARIN [Concomitant]
     Active Substance: WARFARIN
  18. VITAMIN D3 [Concomitant]
     Active Substance: CHOLECALCIFEROL
     Indication: CALCIUM DEFICIENCY
     Dates: start: 2008
  19. FOLVITE [Concomitant]
     Active Substance: FOLIC ACID
  20. CRESTOR [Concomitant]
     Active Substance: ROSUVASTATIN CALCIUM
  21. LANTUS [Concomitant]
     Active Substance: INSULIN GLARGINE
     Dosage: 100 UNIT/ML SOLUTION INJECTION
  22. ASPIRIN. [Concomitant]
     Active Substance: ASPIRIN
     Indication: ATRIAL FIBRILLATION
     Dosage: 100 UNIT/ML SOLUTION INJECTION
     Dates: start: 2010
  23. LASIX [Concomitant]
     Active Substance: FUROSEMIDE
  24. ROSUVASTATIN. [Concomitant]
     Active Substance: ROSUVASTATIN
  25. LISINOPRIL. [Concomitant]
     Active Substance: LISINOPRIL
  26. ZESTRIL [Concomitant]
     Active Substance: LISINOPRIL
  27. APRESOLINE HYDROCHLORIDE [Concomitant]
     Active Substance: HYDRALAZINE HYDROCHLORIDE
  28. PORCIN [Concomitant]

REACTIONS (3)
  - Metastases to lung [Fatal]
  - Pancreatic carcinoma metastatic [Fatal]
  - Adenocarcinoma pancreas [Fatal]

NARRATIVE: CASE EVENT DATE: 20150303
